FAERS Safety Report 5955343-7 (Version None)
Quarter: 2008Q4

REPORT INFORMATION
  Report Type: 
  Country: None (occurrence: None)
  Receive Date: 20081112
  Receipt Date: 20081028
  Transmission Date: 20090506
  Serious: Yes (Life-Threatening)
  Sender: FDA-Public Use
  Company Number: 004832

PATIENT
  Age: 82 Year
  Sex: Male

DRUGS (3)
  1. PLETAL [Suspect]
     Dosage: 100 MG, BID, ORAL
     Route: 048
  2. ASPIRIN [Suspect]
     Dosage: ORAL
     Route: 048
  3. OPALMON (LIMAPROST ALFADEX) TABLET [Concomitant]

REACTIONS (1)
  - CEREBRAL HAEMORRHAGE [None]
